FAERS Safety Report 13742009 (Version 1)
Quarter: 2017Q3

REPORT INFORMATION
  Report Type: Spontaneous
  Country: FR (occurrence: FR)
  Receive Date: 20170711
  Receipt Date: 20170711
  Transmission Date: 20171127
  Serious: Yes (Other)
  Sender: FDA-Public Use
  Company Number: PHHY2009FR47523

PATIENT
  Age: 68 Year
  Sex: Male

DRUGS (1)
  1. CARTEOL LP (NVO) [Suspect]
     Active Substance: CARTEOLOL HYDROCHLORIDE
     Indication: INTRAOCULAR PRESSURE INCREASED
     Dosage: 1 GTT, QD
     Route: 047
     Dates: start: 200810

REACTIONS (5)
  - Red blood cell sedimentation rate increased [Unknown]
  - Pain [Unknown]
  - Hypertension [Unknown]
  - C-reactive protein increased [Unknown]
  - Syncope [Unknown]

NARRATIVE: CASE EVENT DATE: 200906
